FAERS Safety Report 22524518 (Version 3)
Quarter: 2023Q2

REPORT INFORMATION
  Report Type: Spontaneous
  Country: BR (occurrence: BR)
  Receive Date: 20230606
  Receipt Date: 20230619
  Transmission Date: 20230722
  Serious: Yes (Life-Threatening)
  Sender: FDA-Public Use
  Company Number: BR-ORGANON-O2306BRA000430

PATIENT
  Age: 21 Year
  Sex: Female

DRUGS (1)
  1. ETONOGESTREL [Suspect]
     Active Substance: ETONOGESTREL
     Indication: Contraception
     Dosage: 1 IMPLANT OF 68 MG IN HER RIGHT ARM
     Route: 059
     Dates: start: 20200716

REACTIONS (8)
  - Feeling abnormal [Unknown]
  - Implant site pain [Recovered/Resolved]
  - Implant site discolouration [Recovering/Resolving]
  - Peripheral swelling [Recovered/Resolved]
  - Vaginal haemorrhage [Recovered/Resolved]
  - Wrong technique in product usage process [Unknown]
  - Wrong technique in product usage process [Unknown]
  - Wrong technique in product usage process [Unknown]

NARRATIVE: CASE EVENT DATE: 20200716
